FAERS Safety Report 13276289 (Version 2)
Quarter: 2018Q3

REPORT INFORMATION
  Report Type: Spontaneous
  Country: DK (occurrence: DK)
  Receive Date: 20170228
  Receipt Date: 20180809
  Transmission Date: 20181010
  Serious: Yes (Hospitalization)
  Sender: FDA-Public Use
  Company Number: DK-CELGENEUS-DNK-2017011498

PATIENT
  Age: 69 Year
  Sex: Male
  Weight: 84.6 kg

DRUGS (35)
  1. DARATUMUMAB [Suspect]
     Active Substance: DARATUMUMAB
     Dosage: 1360 MG
     Route: 041
     Dates: start: 20161020
  2. DARATUMUMAB [Suspect]
     Active Substance: DARATUMUMAB
     Dosage: 1360 MG
     Route: 041
     Dates: start: 20161214
  3. DEXAMETHASONE ORAL [Suspect]
     Active Substance: DEXAMETHASONE
     Dosage: 20 MG
     Route: 048
     Dates: start: 20161117
  4. DEXAMETHASONE ORAL [Suspect]
     Active Substance: DEXAMETHASONE
     Dosage: 20 MG
     Route: 048
     Dates: start: 20161214
  5. NASONEX [Concomitant]
     Active Substance: MOMETASONE FUROATE
     Indication: SEASONAL ALLERGY
     Dosage: 50 MICROGRAM
     Route: 045
     Dates: start: 20130416
  6. FOLIMET [Concomitant]
     Indication: VITAMIN SUPPLEMENTATION
     Dosage: 5 MILLIGRAM
     Route: 065
     Dates: start: 20160616
  7. ARANESP [Concomitant]
     Active Substance: DARBEPOETIN ALFA
     Indication: ANAEMIA
     Dosage: 300 MICROGRAM
     Route: 058
     Dates: start: 20160824
  8. PROLIA [Concomitant]
     Active Substance: DENOSUMAB
     Indication: PROPHYLAXIS
     Dosage: 60 MILLIGRAM
     Route: 058
     Dates: start: 20160912
  9. KALEORID [Concomitant]
     Active Substance: POTASSIUM CHLORIDE
     Indication: PROPHYLAXIS
  10. PRIVIGEN [Concomitant]
     Active Substance: HUMAN IMMUNOGLOBULIN G
     Indication: INFECTION PROPHYLAXIS
     Dosage: 20 GRAM
     Route: 041
     Dates: start: 20161017
  11. REVLIMID [Suspect]
     Active Substance: LENALIDOMIDE
     Indication: PLASMA CELL MYELOMA
     Dosage: 25 MG
     Route: 048
     Dates: start: 20160922
  12. DEXAMETHASONE ORAL [Suspect]
     Active Substance: DEXAMETHASONE
     Indication: PLASMA CELL MYELOMA
     Dosage: 20 MG
     Route: 048
     Dates: start: 20160922
  13. DEXAMETHASONE ORAL [Suspect]
     Active Substance: DEXAMETHASONE
     Dosage: 20 MG
     Route: 048
     Dates: start: 20161020
  14. LEKOVIT [Concomitant]
     Indication: MINERAL SUPPLEMENTATION
  15. VITRON?C [Concomitant]
     Active Substance: ASCORBIC ACID\IRON
     Indication: ANAEMIA
     Dosage: 10 MILLIGRAM
     Route: 048
     Dates: start: 20160819
  16. MOVICOL [Concomitant]
     Active Substance: POLYETHYLENE GLYCOL 3350\POTASSIUM CHLORIDE\SODIUM BICARBONATE\SODIUM CHLORIDE
     Indication: CONSTIPATION
     Route: 048
     Dates: start: 20160905
  17. MORPHINE [Concomitant]
     Active Substance: MORPHINE
     Indication: BONE PAIN
     Dosage: 20 MILLIGRAM
     Route: 048
     Dates: start: 20160819
  18. DARATUMUMAB [Suspect]
     Active Substance: DARATUMUMAB
     Indication: PLASMA CELL MYELOMA
     Dosage: 1360 MG
     Route: 041
     Dates: start: 20160922
  19. LEKOVIT [Concomitant]
     Indication: VITAMIN SUPPLEMENTATION
     Route: 048
     Dates: start: 20160819
  20. KALEORID [Concomitant]
     Active Substance: POTASSIUM CHLORIDE
     Indication: MINERAL SUPPLEMENTATION
     Dosage: 750 MILLIGRAM
     Route: 048
     Dates: start: 20161012
  21. REVLIMID [Suspect]
     Active Substance: LENALIDOMIDE
     Dosage: 25 MG
     Route: 048
     Dates: start: 20161020
  22. REVLIMID [Suspect]
     Active Substance: LENALIDOMIDE
     Dosage: 25 MG
     Route: 048
     Dates: start: 20161117
  23. FEXOFENADINE [Concomitant]
     Active Substance: FEXOFENADINE\FEXOFENADINE HYDROCHLORIDE
     Indication: SEASONAL ALLERGY
     Dosage: 120 MILLIGRAM
     Route: 048
  24. IMOZOP [Concomitant]
     Active Substance: ZOPICLONE
     Indication: INSOMNIA
     Dosage: 3.75 MILLIGRAM
     Route: 048
     Dates: start: 20140901
  25. FRAGMIN [Concomitant]
     Active Substance: DALTEPARIN SODIUM
     Indication: AORTIC VALVE DISEASE
     Dosage: 18000 IU (INTERNATIONAL UNIT)
     Route: 058
     Dates: start: 20160823
  26. MALFIN [Concomitant]
     Active Substance: MORPHINE SULFATE
     Indication: MYALGIA
     Route: 065
     Dates: start: 20161230
  27. TAZOCIN [Concomitant]
     Active Substance: PIPERACILLIN SODIUM\TAZOBACTAM SODIUM
     Indication: LUNG INFECTION
     Dosage: 12G
     Route: 041
     Dates: start: 20161006
  28. FURIX [Concomitant]
     Active Substance: FUROSEMIDE
     Indication: PULMONARY CONGESTION
     Dosage: 40 MILLIGRAM
     Route: 048
     Dates: start: 20161012
  29. FURIX [Concomitant]
     Active Substance: FUROSEMIDE
     Dosage: 20 MILLIGRAM
     Route: 048
     Dates: start: 20170309
  30. ATORVASTATIN [Concomitant]
     Active Substance: ATORVASTATIN
     Indication: PROPHYLAXIS
     Dosage: 10 MILLIGRAM
     Route: 048
     Dates: start: 20150831
  31. LANSOPRAZOLE. [Concomitant]
     Active Substance: LANSOPRAZOLE
     Indication: PROPHYLAXIS
     Dosage: 30 MILLIGRAM
     Route: 048
     Dates: start: 20160823
  32. DARATUMUMAB [Suspect]
     Active Substance: DARATUMUMAB
     Dosage: 1360 MG
     Route: 041
     Dates: start: 20161117
  33. ALLOPURINOL. [Concomitant]
     Active Substance: ALLOPURINOL
     Indication: GOUTY ARTHRITIS
     Dosage: 100 MILLIGRAM
     Route: 048
     Dates: start: 20140521
  34. PAMOL [Concomitant]
     Active Substance: ACETAMINOPHEN
     Indication: BONE PAIN
     Dosage: 1 GRAM
     Route: 048
     Dates: start: 20140827
  35. IMOLOPE [Concomitant]
     Indication: DIARRHOEA
     Dosage: 2 MILLIGRAM
     Route: 048
     Dates: start: 20160905

REACTIONS (1)
  - C-reactive protein increased [Recovered/Resolved]

NARRATIVE: CASE EVENT DATE: 20161228
